FAERS Safety Report 6520199-0 (Version None)
Quarter: 2009Q4

REPORT INFORMATION
  Report Type: 
  Country: None (occurrence: None)
  Receive Date: 20091229
  Receipt Date: 20091216
  Transmission Date: 20100525
  Serious: Yes (Other)
  Sender: FDA-Public Use
  Company Number: PHHY2009DE57633

PATIENT
  Age: 39 Year
  Sex: Male

DRUGS (3)
  1. TEGRETOL [Suspect]
     Indication: EPILEPSY
     Dosage: 800 MG/DAY
     Route: 048
     Dates: start: 20050101, end: 20070101
  2. TEGRETOL-XR [Suspect]
     Indication: EPILEPSY
     Dosage: 400 MG, BID (MORNING AND EVENING)
     Route: 048
     Dates: start: 20090901
  3. DIAZEPAM [Suspect]
     Indication: ANXIOLYTIC THERAPY
     Dosage: UNK
     Dates: start: 20090901

REACTIONS (4)
  - DETOXIFICATION [None]
  - DIZZINESS [None]
  - NOCTURIA [None]
  - PHOTOSENSITIVITY REACTION [None]
